FAERS Safety Report 17151474 (Version 4)
Quarter: 2020Q1

REPORT INFORMATION
  Report Type: Spontaneous
  Country: DE (occurrence: DE)
  Receive Date: 20191213
  Receipt Date: 20200318
  Transmission Date: 20200409
  Serious: Yes (Life-Threatening, Hospitalization, Disabling)
  Sender: FDA-Public Use
  Company Number: DE-IBIGEN-2019.07716

PATIENT
  Age: 30 Year
  Sex: Female
  Weight: 68 kg

DRUGS (14)
  1. PANTOPRAZOL HEXAL [Concomitant]
     Active Substance: PANTOPRAZOLE
     Indication: PROPHYLAXIS
     Route: 050
     Dates: start: 20170324
  2. PANTOPRAZOL HEXAL [Concomitant]
     Active Substance: PANTOPRAZOLE
     Route: 050
     Dates: start: 20170324
  3. CORTISONE [Suspect]
     Active Substance: CORTISONE
     Route: 042
     Dates: start: 20170324, end: 20170329
  4. PIPERACILLIN/TAZOBACTAM [Suspect]
     Active Substance: PIPERACILLIN SODIUM\TAZOBACTAM SODIUM
     Indication: ENCEPHALITIS AUTOIMMUNE
     Dosage: 3X4.5
     Route: 065
     Dates: start: 20170406, end: 20170408
  5. MIRTAZIPINE [Concomitant]
     Active Substance: MIRTAZAPINE
     Indication: ADJUSTMENT DISORDER WITH DEPRESSED MOOD
     Route: 050
     Dates: start: 20170320
  6. EUCERIN TH UREA [Concomitant]
     Indication: PRODUCT USED FOR UNKNOWN INDICATION
     Dosage: 5CM AT 8AM AND 6PM
     Route: 050
  7. VIGANTOLETTEN [Concomitant]
     Active Substance: CHOLECALCIFEROL
     Indication: PRODUCT USED FOR UNKNOWN INDICATION
     Route: 050
  8. ZINBRYTA [Suspect]
     Active Substance: DACLIZUMAB
     Indication: RELAPSING-REMITTING MULTIPLE SCLEROSIS
     Route: 050
     Dates: start: 20161015, end: 20170112
  9. DEKRISTOL [Concomitant]
     Active Substance: CHOLECALCIFEROL
     Indication: VITAMIN D DEFICIENCY
     Route: 050
  10. CALCIVIT D [Concomitant]
     Indication: PRODUCT USED FOR UNKNOWN INDICATION
     Dosage: 600 MG/400 IU
     Route: 050
  11. CEFUROXIM [Suspect]
     Active Substance: CEFUROXIME
     Indication: ENCEPHALITIS AUTOIMMUNE
     Route: 042
     Dates: start: 20170322, end: 20170322
  12. CLOBEGALEN [Concomitant]
     Indication: PRODUCT USED FOR UNKNOWN INDICATION
     Dosage: 5CM
     Route: 050
  13. CORTISONE [Suspect]
     Active Substance: CORTISONE
     Indication: DRUG REACTION WITH EOSINOPHILIA AND SYSTEMIC SYMPTOMS
     Dosage: HIGH DOSE
     Route: 065
  14. CORTISONE [Suspect]
     Active Substance: CORTISONE
     Route: 065
     Dates: start: 20170407, end: 20170407

REACTIONS (9)
  - Natural killer cell count decreased [Recovered/Resolved]
  - Encephalitis autoimmune [Not Recovered/Not Resolved]
  - Drug reaction with eosinophilia and systemic symptoms [Recovered/Resolved with Sequelae]
  - Aspartate aminotransferase increased [Recovered/Resolved]
  - Oral candidiasis [Unknown]
  - Demyelination [Not Recovered/Not Resolved]
  - Alanine aminotransferase increased [Recovered/Resolved]
  - B-lymphocyte count increased [Recovered/Resolved]
  - Blood lactate dehydrogenase increased [Unknown]

NARRATIVE: CASE EVENT DATE: 20170125
